FAERS Safety Report 6925587-6 (Version None)
Quarter: 2010Q3

REPORT INFORMATION
  Report Type: 
  Country: None (occurrence: None)
  Receive Date: 20100816
  Receipt Date: 20100812
  Transmission Date: 20110219
  Serious: Yes (Hospitalization)
  Sender: FDA-Public Use
  Company Number: FR-MERCK-1008FRA00034

PATIENT
  Age: 61 Year
  Sex: Male

DRUGS (15)
  1. HYZAAR [Suspect]
     Indication: HYPERTENSION
     Route: 048
     Dates: start: 20070701
  2. EMTRICITABINE AND TENOFOVIR DISOPROXIL FUMARATE [Suspect]
     Indication: HIV INFECTION
     Route: 048
     Dates: start: 20090701, end: 20100427
  3. NEVIRAPINE [Suspect]
     Indication: HIV INFECTION
     Route: 048
     Dates: start: 20011101
  4. PANTOPRAZOLE SODIUM [Suspect]
     Indication: PROPHYLAXIS
     Route: 048
     Dates: start: 20070101
  5. COZAAR [Suspect]
     Indication: HYPERTENSION
     Route: 048
     Dates: start: 20030731, end: 20051221
  6. HYZAAR [Suspect]
     Route: 048
     Dates: start: 20051222, end: 20070701
  7. KARDEGIC [Concomitant]
     Route: 048
  8. ESCITALOPRAM OXALATE [Concomitant]
     Route: 048
  9. ATHYMIL [Concomitant]
     Route: 048
  10. ALPRAZOLAM [Concomitant]
     Route: 048
  11. STILNOX [Concomitant]
     Route: 048
  12. TERCIAN [Concomitant]
     Route: 048
  13. CEBUTID [Concomitant]
     Route: 048
  14. TRAMADOL HCL [Concomitant]
     Route: 048
  15. DOLIPRANE [Concomitant]
     Route: 048

REACTIONS (9)
  - ARTHRITIS [None]
  - CERVICOBRACHIAL SYNDROME [None]
  - FEELING ABNORMAL [None]
  - MUSCLE ATROPHY [None]
  - MYALGIA [None]
  - NERVE COMPRESSION [None]
  - OEDEMA PERIPHERAL [None]
  - SPINAL COLUMN STENOSIS [None]
  - ULNAR NERVE PALSY [None]
